FAERS Safety Report 5494933-5 (Version None)
Quarter: 2007Q4

REPORT INFORMATION
  Report Type: 
  Country: None (occurrence: None)
  Receive Date: 20071024
  Receipt Date: 20071019
  Transmission Date: 20080405
  Serious: Yes (Other)
  Sender: FDA-Public Use
  Company Number: A0688711A

PATIENT
  Sex: Female

DRUGS (4)
  1. LAMICTAL [Suspect]
     Indication: MAJOR DEPRESSION
     Dosage: 250MG PER DAY
     Route: 048
     Dates: start: 20061201
  2. PROZAC [Concomitant]
  3. SEROQUEL [Concomitant]
  4. KLONOPIN [Concomitant]

REACTIONS (2)
  - CHOKING [None]
  - DYSPHAGIA [None]
